FAERS Safety Report 6950695 (Version 2)
Quarter: 2014Q1

REPORT INFORMATION
  Report Type: Spontaneous
  Country: US (occurrence: None)
  Receive Date: 20090227
  Receipt Date: 20140304
  Transmission Date: 20141002
  Serious: Yes (Hospitalization, Other)
  Sender: FDA-Public Use
  Company Number: RB-4338-2008

PATIENT
  Sex: Female

DRUGS (6)
  1. SUBOXONE 8 MG [Suspect]
     Indication: DRUG DEPENDENCE
     Dosage: 8 MG BID TRANSPLACENTAL
     Route: 064
     Dates: start: 200710, end: 200711
  2. SUBOXONE 8 MG [Suspect]
     Dosage: 8 MG BID TRANSPLACENTAL
     Route: 064
     Dates: start: 200710, end: 200711
  3. SUBUTEX [Suspect]
     Indication: DRUG DEPENDENCE
     Route: 064
     Dates: start: 200711, end: 200802
  4. VALIUM [Suspect]
     Indication: ANXIETY
     Route: 064
     Dates: end: 20080625
  5. DOXEPIN [Suspect]
     Indication: ANXIETY
     Dosage: 75 MG TRANSPLACENTAL
     Route: 064
     Dates: end: 20080625
  6. DOXEPIN [Suspect]
     Indication: DEPRESSION
     Dosage: 75 MG TRANSPLACENTAL
     Route: 064
     Dates: end: 20080625

REACTIONS (2)
  - Maternal exposure during pregnancy [None]
  - Drug withdrawal syndrome neonatal [None]
